FAERS Safety Report 5024898-1 (Version None)
Quarter: 2006Q2

REPORT INFORMATION
  Report Type: 
  Country: None (occurrence: None)
  Receive Date: 20060607
  Receipt Date: 20060519
  Transmission Date: 20061013
  Serious: Yes (Hospitalization)
  Sender: FDA-Public Use
  Company Number: ES200605005327

PATIENT
  Age: 79 Year
  Sex: Female

DRUGS (6)
  1. FORSTEO(TERIPARATIDE) PEN,DISPOSABLE [Suspect]
     Dosage: 20 UG, DAILY (1/D) SUBCUTANEOUS
     Route: 058
     Dates: start: 20051115
  2. FORTEO [Concomitant]
  3. CALCIUM (CALCIUM) [Concomitant]
  4. ANTIDEPRESSANTS [Concomitant]
  5. ORFIDAL [Concomitant]
  6. PLANTABEN (ISPAGHULA HUSK) [Concomitant]

REACTIONS (2)
  - ANAL HAEMORRHAGE [None]
  - DIZZINESS [None]
